FAERS Safety Report 24167854 (Version 1)
Quarter: 2024Q3

REPORT INFORMATION
  Report Type: Report from Study
  Country: US (occurrence: US)
  Receive Date: 20240802
  Receipt Date: 20240802
  Transmission Date: 20241016
  Serious: Yes (Other)
  Sender: GLAXOSMITHKLINE
  Company Number: US-GLAXOSMITHKLINE-US2024AMR094593

PATIENT

DRUGS (9)
  1. BELIMUMAB [Suspect]
     Active Substance: BELIMUMAB
     Indication: Systemic lupus erythematosus
     Dosage: 200 MG, WE
     Route: 058
     Dates: start: 20231215, end: 20240429
  2. ASPIRIN [Concomitant]
     Active Substance: ASPIRIN
     Indication: Pre-eclampsia
     Dosage: 81 MG, QD (1 QD)
     Route: 048
     Dates: start: 20240429
  3. FOLIC ACID [Concomitant]
     Active Substance: FOLIC ACID
     Indication: Systemic lupus erythematosus
     Dosage: 1 MG, QD (1DAY)
     Route: 048
     Dates: start: 20240315
  4. IMURAN [Concomitant]
     Active Substance: AZATHIOPRINE
     Indication: Systemic lupus erythematosus
     Dosage: 75 MG, QD (1 DAY)
     Route: 048
     Dates: start: 20230415
  5. MAGNESIUM [Concomitant]
     Active Substance: MAGNESIUM
     Indication: Product used for unknown indication
     Dosage: 500 MG, QD (1 DAY)
     Route: 048
     Dates: start: 20240429
  6. HYDROXYCHLOROQUINE [Concomitant]
     Active Substance: HYDROXYCHLOROQUINE
     Indication: Systemic lupus erythematosus
     Dosage: 200 MG, QD (1 DAY)
     Route: 048
     Dates: start: 20210515
  7. PREDNISONE [Concomitant]
     Active Substance: PREDNISONE
     Indication: Systemic lupus erythematosus
     Dosage: 4 MG, QD (1 DAY)
     Route: 048
     Dates: start: 20231215, end: 20240522
  8. PREDNISONE [Concomitant]
     Active Substance: PREDNISONE
     Dosage: 6 MG, QD (1 DAY)
     Route: 048
     Dates: start: 20230523, end: 20240527
  9. PREDNISONE [Concomitant]
     Active Substance: PREDNISONE
     Dosage: 8 MG, QD (1 DAY)
     Route: 048
     Dates: start: 20240528

REACTIONS (3)
  - Abortion spontaneous [Unknown]
  - Sleep disorder [Unknown]
  - Exposure during pregnancy [Unknown]

NARRATIVE: CASE EVENT DATE: 20240703
